FAERS Safety Report 19874209 (Version 1)
Quarter: 2021Q3

REPORT INFORMATION
  Report Type: Spontaneous
  Country: US (occurrence: US)
  Receive Date: 20210923
  Receipt Date: 20210923
  Transmission Date: 20211014
  Serious: No
  Sender: FDA-Public Use
  Company Number: US-PFIZER INC-2020486098

PATIENT
  Age: 75 Year
  Sex: Female
  Weight: 62.6 kg

DRUGS (2)
  1. ARTHROTEC [Suspect]
     Active Substance: DICLOFENAC SODIUM\MISOPROSTOL
     Indication: TRANSIENT ISCHAEMIC ATTACK
  2. ARTHROTEC [Suspect]
     Active Substance: DICLOFENAC SODIUM\MISOPROSTOL
     Indication: SPONDYLITIS
     Dosage: 1 DF, 2X/DAY; (75MG/200MCG; ONE TABLET TWICE A DAY BY MOUTH)
     Route: 048

REACTIONS (1)
  - Off label use [Unknown]
